FAERS Safety Report 15213762 (Version 3)
Quarter: 2019Q1

REPORT INFORMATION
  Report Type: Spontaneous
  Country: US (occurrence: US)
  Receive Date: 20180730
  Receipt Date: 20190208
  Transmission Date: 20190417
  Serious: No
  Sender: FDA-Public Use
  Company Number: US-SA-2018SA007808

PATIENT
  Age: 40 Year
  Sex: Male

DRUGS (13)
  1. DOCUSATE SOD [Concomitant]
  2. AUBAGIO [Suspect]
     Active Substance: TERIFLUNOMIDE
     Indication: MULTIPLE SCLEROSIS
     Dosage: 14 MG,QD
     Route: 048
     Dates: start: 20171228
  3. MULTIVITE [VITAMINS NOS] [Concomitant]
  4. PAROXETINE. [Concomitant]
     Active Substance: PAROXETINE
  5. ZANAFLEX [Concomitant]
     Active Substance: TIZANIDINE HYDROCHLORIDE
  6. GABAPENTIN. [Concomitant]
     Active Substance: GABAPENTIN
  7. GABITRIL [Concomitant]
     Active Substance: TIAGABINE HYDROCHLORIDE
  8. AMPYRA [Concomitant]
     Active Substance: DALFAMPRIDINE
  9. NAPROXEN. [Concomitant]
     Active Substance: NAPROXEN
  10. BACLOFEN. [Concomitant]
     Active Substance: BACLOFEN
  11. VICODIN [Concomitant]
     Active Substance: ACETAMINOPHEN\HYDROCODONE BITARTRATE
  12. AMBIEN [Concomitant]
     Active Substance: ZOLPIDEM TARTRATE
     Route: 065
  13. OXYBUTYNIN. [Concomitant]
     Active Substance: OXYBUTYNIN CHLORIDE

REACTIONS (4)
  - Fall [Unknown]
  - Nausea [Not Recovered/Not Resolved]
  - Sciatica [Unknown]
  - Abdominal pain upper [Not Recovered/Not Resolved]

NARRATIVE: CASE EVENT DATE: 20180721
